FAERS Safety Report 5895792-9 (Version None)
Quarter: 2008Q3

REPORT INFORMATION
  Report Type: 
  Country: None (occurrence: None)
  Receive Date: 20080924
  Receipt Date: 20080715
  Transmission Date: 20090109
  Serious: No
  Sender: FDA-Public Use
  Company Number: US-BAYER-200828778NA

PATIENT
  Age: 29 Year
  Sex: Female

DRUGS (2)
  1. YASMIN [Suspect]
     Indication: CONTRACEPTION
     Route: 048
     Dates: start: 20060715, end: 20080215
  2. MULTI-VITAMIN [Concomitant]

REACTIONS (3)
  - ALOPECIA [None]
  - MOOD ALTERED [None]
  - VITAMIN B12 DEFICIENCY [None]
